FAERS Safety Report 20601723 (Version 3)
Quarter: 2022Q3

REPORT INFORMATION
  Report Type: Spontaneous
  Country: JP (occurrence: JP)
  Receive Date: 20220316
  Receipt Date: 20220715
  Transmission Date: 20221026
  Serious: Yes (Hospitalization)
  Sender: FDA-Public Use
  Company Number: JP-GLAXOSMITHKLINE-JP2022JPN044451

PATIENT

DRUGS (7)
  1. SOTROVIMAB [Suspect]
     Active Substance: SOTROVIMAB
     Indication: COVID-19 treatment
     Dosage: 500 MG, SINGLE
     Dates: start: 20220203
  2. VEKLURY [Concomitant]
     Active Substance: REMDESIVIR
     Dosage: 200 MG FOR 1 DAY, 100 MG FOR 2 DAYS, NUMBER OF DOSES: 3
     Dates: start: 20220203, end: 20220205
  3. FOLIAMIN TABLETS [Concomitant]
     Indication: Vitamin supplementation
     Dosage: 5 MG, BID, AFTER BREAKFAST AND DINNER, STARTED FROM EVENING
     Dates: start: 20220201
  4. GLUCONSAN K FINE GRANULES [Concomitant]
     Indication: Mineral supplementation
     Dosage: 2 DF, BID, AFTER BREAKFAST AND DINNER, STARTED FROM EVENING
     Dates: start: 20220202
  5. PETROLATUM [Concomitant]
     Active Substance: PETROLATUM
     Dosage: UNK UNK, PRN
  6. SODIUM PICOSULFATE ORAL SOLUTION [Concomitant]
     Dosage: PRN, 10 DROPS TAKEN BEFORE SLEEP
  7. ACETAMINOPHEN [Concomitant]
     Active Substance: ACETAMINOPHEN
     Dosage: 400 MG, WHEN HAVING PYREXIA OF 38.0 DEGREES C OR HIGHER
     Dates: start: 20220202

REACTIONS (2)
  - Hospitalisation [Unknown]
  - Blood urea increased [Unknown]

NARRATIVE: CASE EVENT DATE: 20220207
